FAERS Safety Report 4374922-4 (Version None)
Quarter: 2004Q2

REPORT INFORMATION
  Report Type: 
  Country: None (occurrence: None)
  Receive Date: 20040609
  Receipt Date: 20040528
  Transmission Date: 20050107
  Serious: Yes (Hospitalization)
  Sender: FDA-Public Use
  Company Number: PHRM2004FR01954

PATIENT
  Age: 80 Year
  Sex: Female

DRUGS (6)
  1. CLOZAPINE [Suspect]
     Dosage: 25 MG, DAILY
     Route: 048
  2. ARICEPT [Suspect]
     Dosage: 10 MG, DAILY
     Route: 048
  3. FLUDROCORTISONE ACETATE [Suspect]
     Indication: ORTHOSTATIC HYPOTENSION
     Dosage: 0.5 DF, DAILY
     Route: 048
  4. DEROXAT [Suspect]
     Dosage: 20 MG, DAILY
     Route: 048
  5. SINEMET [Concomitant]
     Dosage: 5 DF, DAILY
     Route: 048
  6. GUTRON [Concomitant]
     Indication: ORTHOSTATIC HYPOTENSION
     Dosage: 15 MG, DAILY
     Route: 048

REACTIONS (2)
  - BALANCE DISORDER [None]
  - FALL [None]
